FAERS Safety Report 10971007 (Version 1)
Quarter: 2015Q1

REPORT INFORMATION
  Report Type: Spontaneous
  Country: AU (occurrence: AU)
  Receive Date: 20150331
  Receipt Date: 20150331
  Transmission Date: 20150721
  Serious: Yes (Other)
  Sender: FDA-Public Use
  Company Number: PHHY2015AU027140

PATIENT
  Age: 70 Year
  Sex: Male

DRUGS (1)
  1. ACLASTA [Suspect]
     Active Substance: ZOLEDRONIC ACID
     Indication: PRODUCT USED FOR UNKNOWN INDICATION
     Route: 042
     Dates: start: 20150209

REACTIONS (6)
  - Fatigue [Unknown]
  - Tooth loss [Unknown]
  - Osteonecrosis of jaw [Unknown]
  - Toothache [Unknown]
  - Pain [Unknown]
  - Tooth disorder [Unknown]

NARRATIVE: CASE EVENT DATE: 20150209
